FAERS Safety Report 14152201 (Version 3)
Quarter: 2017Q4

REPORT INFORMATION
  Report Type: Spontaneous
  Country: NL (occurrence: NL)
  Receive Date: 20171102
  Receipt Date: 20171115
  Transmission Date: 20180321
  Serious: Yes (Disabling)
  Sender: FDA-Public Use
  Company Number: NL-JNJFOC-20171034859

PATIENT
  Age: 76 Year
  Sex: Male
  Weight: 115 kg

DRUGS (3)
  1. ACENOCOUMAROL [Concomitant]
     Active Substance: ACENOCOUMAROL
     Route: 048
  2. PREDNISONE. [Concomitant]
     Active Substance: PREDNISONE
     Route: 065
  3. ZYTIGA [Suspect]
     Active Substance: ABIRATERONE ACETATE
     Indication: PROSTATE CANCER METASTATIC
     Dosage: STRENGTH: 250 MG
     Route: 048
     Dates: start: 20170501, end: 20171025

REACTIONS (5)
  - Cataract [Unknown]
  - Venous occlusion [Not Recovered/Not Resolved]
  - Eye disorder [Not Recovered/Not Resolved]
  - Macular oedema [Unknown]
  - Visual impairment [Not Recovered/Not Resolved]

NARRATIVE: CASE EVENT DATE: 20171020
